FAERS Safety Report 10038325 (Version 1)
Quarter: 2014Q1

REPORT INFORMATION
  Report Type: Spontaneous
  Country: US (occurrence: None)
  Receive Date: 20140306
  Receipt Date: 20140306
  Transmission Date: 20141002
  Serious: Yes (Hospitalization, Other)
  Sender: FDA-Public Use
  Company Number: 163-21880-13106040

PATIENT
  Age: 72 Year
  Sex: Female

DRUGS (4)
  1. REVLIMID [Suspect]
     Indication: PLASMA CELL MYELOMA
     Route: 048
     Dates: start: 20110525, end: 20130513
  2. COUMADIN (WARFARIN SODIUM) [Concomitant]
  3. GABAPENTIN (GABAPENTIN) [Concomitant]
  4. VELCADE (BORTEZOMIB) [Concomitant]

REACTIONS (2)
  - Fall [None]
  - Subdural haematoma [None]
